FAERS Safety Report 18128334 (Version 2)
Quarter: 2020Q3

REPORT INFORMATION
  Report Type: Report from Study
  Country: SG (occurrence: SG)
  Receive Date: 20200810
  Receipt Date: 20200817
  Transmission Date: 20201103
  Serious: Yes (Death)
  Sender: FDA-Public Use
  Company Number: NVSC2020SG220810

PATIENT
  Sex: Male

DRUGS (1)
  1. INC280 [Suspect]
     Active Substance: CAPMATINIB
     Indication: NON-SMALL CELL LUNG CANCER METASTATIC
     Dosage: 400 MG, BID
     Route: 065

REACTIONS (3)
  - Non-small cell lung cancer metastatic [Fatal]
  - Pneumonia [Fatal]
  - EGFR gene mutation [Fatal]
